FAERS Safety Report 7356140-0 (Version None)
Quarter: 2011Q1

REPORT INFORMATION
  Report Type: 
  Country: None (occurrence: None)
  Receive Date: 20110316
  Receipt Date: 20110218
  Transmission Date: 20110831
  Serious: No
  Sender: FDA-Public Use
  Company Number: US-B.I. PHARMACEUTICALS,INC./RIDGEFIELD-2011-BP-06104BP

PATIENT
  Sex: Female

DRUGS (8)
  1. CALCIUM [Concomitant]
     Indication: PROPHYLAXIS
  2. LANOXIN [Concomitant]
     Indication: ATRIAL FIBRILLATION
  3. PRINIVIL [Concomitant]
     Indication: HYPERTENSION
  4. LEVOTHYROXINE [Concomitant]
     Indication: HYPOTHYROIDISM
  5. VESICARE [Concomitant]
     Indication: BLADDER DISORDER
  6. PRADAXA [Suspect]
     Indication: ATRIAL FIBRILLATION
     Dosage: 300 MG
     Route: 048
     Dates: start: 20110203
  7. SOTALOL HYDROCHLORIDE [Concomitant]
     Indication: ATRIAL FIBRILLATION
  8. SPIRONOLACTONE [Concomitant]
     Indication: HYPERTENSION

REACTIONS (1)
  - FLATULENCE [None]
